FAERS Safety Report 20598189 (Version 5)
Quarter: 2022Q4

REPORT INFORMATION
  Report Type: Other
  Country: CA (occurrence: None)
  Receive Date: 20220315
  Receipt Date: 20221223
  Transmission Date: 20230113
  Serious: Yes (Hospitalization, Other)
  Sender: FDA-Public Use
  Company Number: CA-ROCHE-3040800

PATIENT
  Sex: Female

DRUGS (1)
  1. OCREVUS [Suspect]
     Active Substance: OCRELIZUMAB
     Indication: Relapsing-remitting multiple sclerosis
     Dosage: THEN 600 MG EVERY 6 MONTH
     Route: 042
     Dates: start: 20211230

REACTIONS (4)
  - Nephrolithiasis [Not Recovered/Not Resolved]
  - COVID-19 [Not Recovered/Not Resolved]
  - Drug ineffective [Unknown]
  - Multiple sclerosis [Unknown]
